FAERS Safety Report 13256283 (Version 2)
Quarter: 2017Q2

REPORT INFORMATION
  Report Type: Spontaneous
  Country: US (occurrence: US)
  Receive Date: 20170221
  Receipt Date: 20170410
  Transmission Date: 20170830
  Serious: Yes (Death, Hospitalization, Other)
  Sender: FDA-Public Use
  Company Number: US-INCYTE CORPORATION-2017IN000993

PATIENT
  Age: 60 Year
  Sex: Female
  Weight: 55 kg

DRUGS (8)
  1. POSACONAZOLE [Concomitant]
     Active Substance: POSACONAZOLE
     Indication: GRAFT VERSUS HOST DISEASE
     Dosage: UNK
     Dates: start: 20170201
  2. PENTOSTATIN. [Suspect]
     Active Substance: PENTOSTATIN
     Indication: GRAFT VERSUS HOST DISEASE
     Dosage: NOT SPECIFIED
     Dates: start: 20170207
  3. CASPOFUNGIN [Concomitant]
     Active Substance: CASPOFUNGIN
     Indication: PRODUCT USED FOR UNKNOWN INDICATION
  4. TACROLIMUS ACCORD [Concomitant]
     Active Substance: TACROLIMUS
     Indication: PRODUCT USED FOR UNKNOWN INDICATION
     Dosage: 1 MG, QD
  5. JAKAFI [Suspect]
     Active Substance: RUXOLITINIB
     Indication: GRAFT VERSUS HOST DISEASE IN GASTROINTESTINAL TRACT
     Dosage: 5 MG, BID
     Route: 048
     Dates: start: 20170120
  6. PREDNISONE. [Concomitant]
     Active Substance: PREDNISONE
     Indication: PRODUCT USED FOR UNKNOWN INDICATION
  7. SIROLIMUS. [Concomitant]
     Active Substance: SIROLIMUS
     Indication: PRODUCT USED FOR UNKNOWN INDICATION
     Dosage: 1 MG, QD
  8. JAKAFI [Suspect]
     Active Substance: RUXOLITINIB
     Dosage: 5 MG, QD
     Route: 048
     Dates: start: 201702, end: 201703

REACTIONS (32)
  - Graft versus host disease in gastrointestinal tract [Fatal]
  - Respiratory failure [Unknown]
  - Haematochezia [Unknown]
  - Parainfluenzae virus infection [Unknown]
  - Platelet count decreased [Unknown]
  - Off label use [Not Recovered/Not Resolved]
  - Hepatic enzyme increased [Unknown]
  - Small intestinal obstruction [Unknown]
  - Hyponatraemia [Recovering/Resolving]
  - Blood bilirubin increased [Unknown]
  - White blood cell count decreased [Unknown]
  - Abdominal pain [Unknown]
  - Dyspnoea [Unknown]
  - Hypotension [Unknown]
  - Ascites [Unknown]
  - Abdominal distension [Unknown]
  - Melaena [Unknown]
  - Delirium [Unknown]
  - Bronchopulmonary aspergillosis [Unknown]
  - Large intestinal ulcer [Unknown]
  - Diarrhoea haemorrhagic [Not Recovered/Not Resolved]
  - Rectal ulcer [Unknown]
  - Atrial fibrillation [Unknown]
  - Haemorrhoids [Unknown]
  - Pneumonia fungal [Unknown]
  - Anorectal discomfort [Unknown]
  - Cytomegalovirus colitis [Unknown]
  - Haematuria [Unknown]
  - Haemoglobin decreased [Unknown]
  - Pancytopenia [Unknown]
  - Neutropenia [Unknown]
  - Diarrhoea [Unknown]

NARRATIVE: CASE EVENT DATE: 20170107
